FAERS Safety Report 9261424 (Version 2)
Quarter: 2013Q2

REPORT INFORMATION
  Report Type: Spontaneous
  Country: PH (occurrence: PH)
  Receive Date: 20130429
  Receipt Date: 20130503
  Transmission Date: 20140414
  Serious: Yes (Death, Hospitalization)
  Sender: FDA-Public Use
  Company Number: PH-MERCK-1304PHL016839

PATIENT
  Age: 55 Year
  Sex: Male

DRUGS (2)
  1. JANUMET [Suspect]
     Indication: DIABETES MELLITUS
     Dosage: 500 MG, UNK
     Route: 048
     Dates: start: 201302, end: 201303
  2. JANUMET [Suspect]
     Dosage: 850 MG, UNK
     Route: 048
     Dates: start: 201303

REACTIONS (2)
  - Hepatic cirrhosis [Fatal]
  - Insomnia [Unknown]
